FAERS Safety Report 9938886 (Version 1)
Quarter: 2014Q1

REPORT INFORMATION
  Report Type: Report from Study
  Country: US (occurrence: US)
  Receive Date: 20140303
  Receipt Date: 20140303
  Transmission Date: 20141002
  Serious: No
  Sender: FDA-Public Use
  Company Number: US-ABBVIE-13P-163-1033710-00

PATIENT
  Age: 41 Year
  Sex: Male
  Weight: 83 kg

DRUGS (1)
  1. HUMIRA [Suspect]
     Indication: PSORIASIS
     Dates: start: 2011

REACTIONS (2)
  - Angina pectoris [Not Recovered/Not Resolved]
  - Nasal congestion [Not Recovered/Not Resolved]
